FAERS Safety Report 5699097-0 (Version None)
Quarter: 2008Q2

REPORT INFORMATION
  Report Type: 
  Country: None (occurrence: None)
  Receive Date: 20080401
  Receipt Date: 20070604
  Transmission Date: 20081010
  Serious: Yes (Other)
  Sender: FDA-Public Use
  Company Number: HQWYE515707JUN07

PATIENT
  Age: 76 Year
  Sex: Female

DRUGS (2)
  1. INDERAL LA [Suspect]
     Indication: HYPERTENSION
     Dosage: 60 MG 1X PER 1 DAY, ORAL
     Route: 048
     Dates: start: 20070501, end: 20070501
  2. VASOTEC [Concomitant]

REACTIONS (3)
  - OEDEMA PERIPHERAL [None]
  - SWELLING FACE [None]
  - TREMOR [None]
